FAERS Safety Report 10229515 (Version 1)
Quarter: 2014Q2

REPORT INFORMATION
  Report Type: Spontaneous
  Country: US (occurrence: None)
  Receive Date: 20140519
  Receipt Date: 20140519
  Transmission Date: 20141212
  Serious: Yes (Other)
  Sender: FDA-Public Use
  Company Number: 1613964

PATIENT
  Age: 45 Year
  Sex: Male
  Weight: 90.91 kg

DRUGS (1)
  1. PROPOFOL [Suspect]
     Indication: PRODUCT USED FOR UNKNOWN INDICATION
     Dosage: (NOT OTHERWISE SPECIFIED)??11:45 AM - 12.06 PM
     Route: 042
     Dates: start: 20130219, end: 20131219

REACTIONS (1)
  - Generalised tonic-clonic seizure [None]
